FAERS Safety Report 13458418 (Version 1)
Quarter: 2017Q2

REPORT INFORMATION
  Report Type: Spontaneous
  Country: US (occurrence: US)
  Receive Date: 20170419
  Receipt Date: 20170419
  Transmission Date: 20170830
  Serious: Yes (Life-Threatening, Hospitalization, Other)
  Sender: FDA-Public Use
  Company Number: US-ZYDUS-014588

PATIENT
  Age: 32 Year
  Sex: Male

DRUGS (1)
  1. BUPROPION/BUPROPION HYDROCHLORIDE [Suspect]
     Active Substance: BUPROPION HYDROCHLORIDE
     Indication: PRODUCT USED FOR UNKNOWN INDICATION
     Dosage: 30 TO 90 EXTENDED RELEASE TABLETS
     Route: 065

REACTIONS (10)
  - Sinus tachycardia [Unknown]
  - Status epilepticus [Recovered/Resolved]
  - Epilepsy [Recovered/Resolved]
  - Hypokinesia [Recovered/Resolved]
  - Pneumonia aspiration [Unknown]
  - Generalised tonic-clonic seizure [Recovered/Resolved]
  - Corneal reflex decreased [Recovered/Resolved]
  - Intentional overdose [Unknown]
  - Pupil fixed [Recovered/Resolved]
  - Mydriasis [Recovered/Resolved]
